FAERS Safety Report 23098023 (Version 1)
Quarter: 2023Q4

REPORT INFORMATION
  Report Type: Report from Study
  Country: CH (occurrence: CH)
  Receive Date: 20231023
  Receipt Date: 20231023
  Transmission Date: 20240109
  Serious: Yes (Other)
  Sender: FDA-Public Use
  Company Number: CH-ViiV Healthcare Limited-CH2023GSK146023

PATIENT

DRUGS (1)
  1. DOLUTEGRAVIR [Suspect]
     Active Substance: DOLUTEGRAVIR
     Indication: HIV infection
     Dosage: UNK

REACTIONS (2)
  - Viral mutation identified [Unknown]
  - HIV viraemia [Unknown]
